FAERS Safety Report 10555034 (Version 1)
Quarter: 2014Q4

REPORT INFORMATION
  Report Type: Spontaneous
  Country: US (occurrence: None)
  Receive Date: 20141029
  Receipt Date: 20141029
  Transmission Date: 20150529
  Serious: Yes (Congenital Anomaly)
  Sender: FDA-Public Use
  Company Number: None

PATIENT
  Age: 32 Year
  Sex: Female
  Weight: 77.11 kg

DRUGS (1)
  1. PROGESTERONE INJECTION [Suspect]
     Active Substance: PROGESTERONE
     Indication: PREMATURE LABOUR
     Dosage: SHOT WEEKLY INTO THE MUSCLE
     Route: 030
     Dates: start: 20130322, end: 20130816

REACTIONS (3)
  - Hypospadias [None]
  - Cryptorchism [None]
  - Maternal drugs affecting foetus [None]

NARRATIVE: CASE EVENT DATE: 20130906
